FAERS Safety Report 24224830 (Version 1)
Quarter: 2024Q3

REPORT INFORMATION
  Report Type: Report from Study
  Country: US (occurrence: US)
  Receive Date: 20240819
  Receipt Date: 20240819
  Transmission Date: 20241017
  Serious: Yes (Other)
  Sender: JOHNSON AND JOHNSON
  Company Number: US-JNJFOC-20240835674

PATIENT
  Sex: Female

DRUGS (4)
  1. SPRAVATO [Suspect]
     Active Substance: ESKETAMINE
     Indication: Depression
     Dosage: 56 MG, TOTAL OF 4 DOSES
     Dates: start: 20200224, end: 20200305
  2. SPRAVATO [Suspect]
     Active Substance: ESKETAMINE
     Dosage: 84 MG, TOTAL OF 25 DOSES
     Dates: start: 20200312, end: 20210325
  3. SPRAVATO [Suspect]
     Active Substance: ESKETAMINE
     Dates: start: 20220202, end: 20230131
  4. SPRAVATO [Suspect]
     Active Substance: ESKETAMINE
     Dosage: 84 MG, TOTAL OF 30 DOSES
     Dates: start: 20230612, end: 20240808

REACTIONS (1)
  - Diabetes mellitus [Unknown]
